FAERS Safety Report 10477211 (Version 1)
Quarter: 2014Q3

REPORT INFORMATION
  Report Type: Spontaneous
  Country: US (occurrence: US)
  Receive Date: 20140926
  Receipt Date: 20140926
  Transmission Date: 20150326
  Serious: No
  Sender: FDA-Public Use
  Company Number: US-SHIRE-US201406180

PATIENT
  Age: 4 Year
  Sex: Male
  Weight: 16.78 kg

DRUGS (1)
  1. INTUNIV [Suspect]
     Active Substance: GUANFACINE HYDROCHLORIDE
     Indication: ATTENTION DEFICIT/HYPERACTIVITY DISORDER
     Dosage: 2 MG (CUT IN HALF AND BOTH HALVES TAKEN), 1X/DAY:QD
     Route: 048
     Dates: start: 20140911, end: 20140918

REACTIONS (3)
  - Off label use [Recovered/Resolved]
  - Pruritus generalised [Unknown]
  - Wrong technique in drug usage process [Recovered/Resolved]

NARRATIVE: CASE EVENT DATE: 20140911
